FAERS Safety Report 19603695 (Version 1)
Quarter: 2021Q3

REPORT INFORMATION
  Report Type: Spontaneous
  Country: FR (occurrence: FR)
  Receive Date: 20210723
  Receipt Date: 20210723
  Transmission Date: 20211014
  Serious: Yes (Hospitalization)
  Sender: FDA-Public Use
  Company Number: FR-SPARK THERAPEUTICS, INC.-FR-SPK-21-00050

PATIENT
  Age: 21 Year
  Sex: Female

DRUGS (3)
  1. LUXTURNA [Suspect]
     Active Substance: VORETIGENE NEPARVOVEC-RZYL
     Indication: PRODUCT USED FOR UNKNOWN INDICATION
  2. CORTICOSTEROIDS [Suspect]
     Active Substance: CORTICOSTEROID NOS
     Indication: PRODUCT USED FOR UNKNOWN INDICATION
  3. LUXTURNA [Suspect]
     Active Substance: VORETIGENE NEPARVOVEC-RZYL
     Indication: PRODUCT USED FOR UNKNOWN INDICATION

REACTIONS (1)
  - Brief psychotic disorder with marked stressors [Unknown]
